FAERS Safety Report 7284108-1 (Version None)
Quarter: 2011Q1

REPORT INFORMATION
  Report Type: 
  Country: None (occurrence: None)
  Receive Date: 20110209
  Receipt Date: 20100212
  Transmission Date: 20110831
  Serious: No
  Sender: FDA-Public Use
  Company Number: US-PFIZER INC-2010021454

PATIENT
  Sex: Female

DRUGS (2)
  1. CADUET [Suspect]
     Indication: HYPERTENSION
     Dosage: [AMLODIPINE 10MG]/[ATORVASTATIN 10MG]; DAILY
  2. CADUET [Suspect]
     Indication: BLOOD CHOLESTEROL INCREASED

REACTIONS (3)
  - NAUSEA [None]
  - HEADACHE [None]
  - FLUSHING [None]
